FAERS Safety Report 5951527-2 (Version None)
Quarter: 2008Q4

REPORT INFORMATION
  Report Type: 
  Country: None (occurrence: None)
  Receive Date: 20081113
  Receipt Date: 20081103
  Transmission Date: 20090506
  Serious: Yes (Death, Hospitalization, Other)
  Sender: FDA-Public Use
  Company Number: US-BAXTER-2008BH011431

PATIENT
  Sex: Female

DRUGS (3)
  1. EXTRANEAL [Suspect]
     Indication: PERITONEAL DIALYSIS
     Dosage: DOSE UNIT:UNKNOWN
     Route: 033
     Dates: start: 20071201, end: 20081017
  2. INSULIN [Suspect]
     Indication: BLOOD GLUCOSE INCREASED
     Dosage: DOSE UNIT:UNKNOWN
     Route: 041
     Dates: start: 20081017, end: 20081018
  3. DIANEAL [Concomitant]
     Indication: PERITONEAL DIALYSIS
     Dosage: DOSE UNIT:UNKNOWN
     Route: 033

REACTIONS (5)
  - BLOOD GLUCOSE FALSE POSITIVE [None]
  - DEVICE INTERACTION [None]
  - HYPOGLYCAEMIA [None]
  - MEDICATION ERROR [None]
  - UROSEPSIS [None]
